FAERS Safety Report 9120166 (Version 2)
Quarter: 2013Q2

REPORT INFORMATION
  Report Type: Report from Study
  Country: US (occurrence: US)
  Receive Date: 20130226
  Receipt Date: 20130625
  Transmission Date: 20140414
  Serious: Yes (Other)
  Sender: FDA-Public Use
  Company Number: US-JNJFOC-20130211798

PATIENT
  Sex: Female
  Weight: 62.2 kg

DRUGS (2)
  1. REMICADE [Suspect]
     Indication: INFLAMMATORY BOWEL DISEASE
     Route: 042
     Dates: start: 200809, end: 200902
  2. HUMIRA [Concomitant]
     Dates: start: 20090313

REACTIONS (2)
  - Abortion spontaneous [Recovered/Resolved]
  - Maternal exposure before pregnancy [Recovered/Resolved]
